FAERS Safety Report 4756108-4 (Version None)
Quarter: 2005Q3

REPORT INFORMATION
  Report Type: 
  Country: None (occurrence: None)
  Receive Date: 20050830
  Receipt Date: 20050711
  Transmission Date: 20060218
  Serious: Yes (Hospitalization)
  Sender: FDA-Public Use
  Company Number: NLWYE825412JUL05

PATIENT
  Sex: Female

DRUGS (16)
  1. ENBREL [Suspect]
     Indication: RHEUMATOID ARTHRITIS
     Route: 058
     Dates: start: 20050629
  2. LEVOTHYROXINE SODIUM [Concomitant]
  3. FOLIC ACID [Concomitant]
  4. RABEPRAZOLE SODIUM [Concomitant]
  5. METHOTREXATE [Concomitant]
  6. NAPROXEN [Concomitant]
  7. FERROUS FUMARATE [Concomitant]
  8. LEVETIRACETAM [Concomitant]
  9. TRILEPTAL [Concomitant]
  10. INSULIN LISPRO [Concomitant]
  11. FLUTICASONE PROPIONATE [Concomitant]
  12. FORMOTEROL FUMARATE [Concomitant]
  13. ALBUTEROL SULFATE HFA [Concomitant]
  14. PREDNISONE [Concomitant]
  15. ALENDRONATE SODIUM [Concomitant]
  16. ERGOCALCIFEROL [Concomitant]

REACTIONS (7)
  - CONCUSSION [None]
  - DIPLOPIA [None]
  - EPILEPSY [None]
  - FALL [None]
  - HEAD INJURY [None]
  - ORBITAL OEDEMA [None]
  - PERIORBITAL HAEMATOMA [None]
